FAERS Safety Report 6308183-3 (Version None)
Quarter: 2009Q3

REPORT INFORMATION
  Report Type: 
  Country: None (occurrence: None)
  Receive Date: 20090807
  Receipt Date: 20090723
  Transmission Date: 20100115
  Serious: Yes (Hospitalization)
  Sender: FDA-Public Use
  Company Number: 2009AL004807

PATIENT
  Age: 74 Year
  Sex: Male

DRUGS (24)
  1. DIGOXIN [Suspect]
     Dosage: 0.125MG, DAILY, PO
     Route: 048
  2. GLUCOPHAGE [Concomitant]
  3. AMITRIPTYLINE HCL [Concomitant]
  4. LIPITOR [Concomitant]
  5. PREDNISONE TAB [Concomitant]
  6. LEVAQUIN [Concomitant]
  7. THEOPHYLLINE [Concomitant]
  8. LASIX [Concomitant]
  9. METFORMIN [Concomitant]
  10. METOPROLOL TARTRATE [Concomitant]
  11. OMEPRAZOLE [Concomitant]
  12. ASPIRIN [Concomitant]
  13. ALBUTEROL [Concomitant]
  14. AMITRIPTYLINE HCL [Concomitant]
  15. CEPHALEXIN [Concomitant]
  16. COMBIVENT [Concomitant]
  17. SEREVENT [Concomitant]
  18. AMIODARONE HCL [Concomitant]
  19. KLOR-CON [Concomitant]
  20. KETOCONAZOLE [Concomitant]
  21. ADVAIR HFA [Concomitant]
  22. NITROGLYCERIN [Concomitant]
  23. TOPROL-XL [Concomitant]
  24. PRILOSEC [Concomitant]

REACTIONS (5)
  - ATRIAL FIBRILLATION [None]
  - BRADYCARDIA [None]
  - CHRONIC OBSTRUCTIVE PULMONARY DISEASE [None]
  - CONDITION AGGRAVATED [None]
  - HYPOTENSION [None]
